FAERS Safety Report 10250724 (Version 1)
Quarter: 2014Q2

REPORT INFORMATION
  Report Type: Spontaneous
  Country: TR (occurrence: TR)
  Receive Date: 20140620
  Receipt Date: 20140620
  Transmission Date: 20141212
  Serious: Yes (Life-Threatening)
  Sender: FDA-Public Use
  Company Number: TR-ASTRAZENECA-2014SE45325

PATIENT
  Age: 39 Year
  Sex: Male
  Weight: 125 kg

DRUGS (2)
  1. NEXIUM [Suspect]
     Indication: GASTRITIS
     Route: 042
     Dates: start: 20140603, end: 20140603
  2. CORASPIN [Concomitant]

REACTIONS (3)
  - Eyelid oedema [Recovered/Resolved]
  - Erythema [Recovered/Resolved]
  - Urticaria [Recovered/Resolved]
